FAERS Safety Report 24703287 (Version 1)
Quarter: 2024Q4

REPORT INFORMATION
  Report Type: Spontaneous
  Country: US (occurrence: US)
  Receive Date: 20241205
  Receipt Date: 20241205
  Transmission Date: 20250115
  Serious: No
  Sender: BAUSCH AND LOMB
  Company Number: US-BAUSCHBL-2024BNL038209

PATIENT
  Age: 73 Year
  Sex: Female

DRUGS (1)
  1. MIEBO [Suspect]
     Active Substance: PERFLUOROHEXYLOCTANE
     Indication: Dry eye
     Dosage: AS NEEDED
     Route: 047

REACTIONS (4)
  - Eye irritation [Recovered/Resolved]
  - Patient dissatisfaction with treatment [Unknown]
  - Product quality issue [Unknown]
  - Inappropriate schedule of product administration [Unknown]
